FAERS Safety Report 9123029 (Version 1)
Quarter: 2013Q1

REPORT INFORMATION
  Report Type: Spontaneous
  Country: US (occurrence: US)
  Receive Date: 20130227
  Receipt Date: 20130227
  Transmission Date: 20140127
  Serious: No
  Sender: FDA-Public Use
  Company Number: US-JNJFOC-20130208395

PATIENT
  Sex: Male
  Weight: 83.92 kg

DRUGS (3)
  1. DURAGESIC [Suspect]
     Indication: PAIN
     Route: 062
  2. MS CONTIN [Concomitant]
     Route: 065
  3. MUSCLE RELAXANT [Concomitant]
     Route: 065

REACTIONS (3)
  - Product quality issue [Unknown]
  - Product quality issue [Unknown]
  - Poor quality drug administered [Not Recovered/Not Resolved]
